FAERS Safety Report 19983905 (Version 1)
Quarter: 2021Q4

REPORT INFORMATION
  Report Type: Spontaneous
  Country: US (occurrence: US)
  Receive Date: 20211021
  Receipt Date: 20211021
  Transmission Date: 20220303
  Serious: Yes (Hospitalization)
  Sender: FDA-Public Use
  Company Number: None

PATIENT
  Age: 63 Year
  Sex: Female
  Weight: 80.1 kg

DRUGS (3)
  1. TAXOL [Suspect]
     Active Substance: PACLITAXEL
     Dates: end: 20211008
  2. PERTUZUMAB [Suspect]
     Active Substance: PERTUZUMAB
     Dates: end: 20210927
  3. HERCEPTIN [Suspect]
     Active Substance: TRASTUZUMAB
     Dates: end: 20210927

REACTIONS (11)
  - Asthenia [None]
  - Fatigue [None]
  - Therapy interrupted [None]
  - Nausea [None]
  - Vomiting [None]
  - Hypotension [None]
  - Anaemia [None]
  - Lung infiltration [None]
  - Gastritis [None]
  - Gastrointestinal haemorrhage [None]
  - Gastrointestinal ulcer [None]

NARRATIVE: CASE EVENT DATE: 20211011
